FAERS Safety Report 16108854 (Version 1)
Quarter: 2019Q1

REPORT INFORMATION
  Report Type: Spontaneous
  Country: US (occurrence: US)
  Receive Date: 20190323
  Receipt Date: 20190323
  Transmission Date: 20190418
  Serious: Yes (Other)
  Sender: FDA-Public Use
  Company Number: PHHY2019US063591

PATIENT

DRUGS (1)
  1. EVEROLIMUS. [Suspect]
     Active Substance: EVEROLIMUS
     Indication: MANTLE CELL LYMPHOMA
     Dosage: UNK UNK, QD
     Route: 048

REACTIONS (2)
  - Product use in unapproved indication [Unknown]
  - Small intestinal obstruction [Unknown]
